FAERS Safety Report 7875465-3 (Version None)
Quarter: 2011Q4

REPORT INFORMATION
  Report Type: 
  Country: None (occurrence: None)
  Receive Date: 20111031
  Receipt Date: 20111025
  Transmission Date: 20120403
  Serious: Yes (Death, Other)
  Sender: FDA-Public Use
  Company Number: PHHY2011JP92919

PATIENT
  Age: 73 Year
  Sex: Male

DRUGS (3)
  1. NEORAL [Suspect]
     Indication: RENAL TRANSPLANT
     Dosage: UNK UKN, UNK
     Route: 048
  2. METHYLPREDNISOLONE [Concomitant]
     Dosage: UNK UKN, UNK
  3. MIZORIBINE [Concomitant]

REACTIONS (2)
  - CARDIAC FAILURE [None]
  - ACUTE RESPIRATORY DISTRESS SYNDROME [None]
